FAERS Safety Report 8488001-8 (Version None)
Quarter: 2012Q3

REPORT INFORMATION
  Report Type: 
  Country: None (occurrence: None)
  Receive Date: 20120705
  Receipt Date: 20120629
  Transmission Date: 20120928
  Serious: Yes (Hospitalization, Other)
  Sender: FDA-Public Use
  Company Number: PHEH2012US013120

PATIENT
  Sex: Female
  Weight: 69 kg

DRUGS (1)
  1. EXJADE [Suspect]
     Indication: IRON OVERLOAD
     Dosage: 3.6 MG/KG, QD (250 MG, QD)
     Route: 048
     Dates: start: 20120511, end: 20120629

REACTIONS (3)
  - DIARRHOEA [None]
  - ANAEMIA [None]
  - ASTHENIA [None]
